FAERS Safety Report 14223338 (Version 1)
Quarter: 2017Q4

REPORT INFORMATION
  Report Type: Spontaneous
  Country: US (occurrence: US)
  Receive Date: 20171124
  Receipt Date: 20171124
  Transmission Date: 20180321
  Serious: No
  Sender: FDA-Public Use
  Company Number: US-009507513-1711USA002401

PATIENT
  Sex: Female

DRUGS (3)
  1. STROMECTOL [Suspect]
     Active Substance: IVERMECTIN
     Indication: INFECTION PARASITIC
     Dosage: TWO 3MG TABLETS WEEKLY
     Dates: start: 20170621, end: 201707
  2. STROMECTOL [Suspect]
     Active Substance: IVERMECTIN
     Dosage: TWO 4 MG TABLET SINGLE DOSE
     Dates: start: 2017, end: 2017
  3. STROMECTOL [Suspect]
     Active Substance: IVERMECTIN
     Dosage: TWO 3MG TABLETS WEEKLY
     Dates: start: 2017, end: 2017

REACTIONS (1)
  - Infestation [Not Recovered/Not Resolved]

NARRATIVE: CASE EVENT DATE: 201709
